FAERS Safety Report 8911679 (Version 1)
Quarter: 2012Q4

REPORT INFORMATION
  Report Type: 
  Country: US (occurrence: US)
  Receive Date: 20121116
  Receipt Date: 20121116
  Transmission Date: 20130627
  Serious: Yes (Hospitalization)
  Sender: FDA-Public Use
  Company Number: US-BAYER-2012-118064

PATIENT
  Age: 34 Year
  Sex: Female
  Weight: 132.88 kg

DRUGS (11)
  1. YASMIN [Suspect]
  2. OCELLA [Suspect]
  3. YAZ [Suspect]
  4. BYETTA [Concomitant]
     Dosage: 10 ?g, daily
  5. METFORMIN [Concomitant]
     Dosage: 1000 mg, daily
  6. FUROSEMIDE [Concomitant]
     Dosage: 20 mg, daily
     Route: 048
  7. LASIX [Concomitant]
  8. REPLIVA 21 - 7 [Concomitant]
     Dosage: daily
  9. METOCLOPRAMIDE [Concomitant]
     Dosage: 10 mg, UNK
  10. REGLAN [Concomitant]
  11. LISINOPRIL [Concomitant]
     Dosage: 10 mg, UNK

REACTIONS (2)
  - Deep vein thrombosis [None]
  - Pulmonary embolism [None]
